FAERS Safety Report 19304563 (Version 1)
Quarter: 2021Q2

REPORT INFORMATION
  Report Type: Other
  Country: US (occurrence: US)
  Receive Date: 20210526
  Receipt Date: 20210526
  Transmission Date: 20210717
  Serious: Yes (Other)
  Sender: FDA-Public Use
  Company Number: US-KALEO, INC.-2021KL000064

PATIENT
  Age: 48 Year
  Sex: Female

DRUGS (1)
  1. AUVI?Q [Suspect]
     Active Substance: EPINEPHRINE
     Indication: ANAPHYLACTIC REACTION
     Route: 030

REACTIONS (2)
  - Acute myocardial infarction [Unknown]
  - Vascular stent thrombosis [Unknown]
